FAERS Safety Report 17454170 (Version 2)
Quarter: 2020Q1

REPORT INFORMATION
  Report Type: Report from Study
  Country: US (occurrence: US)
  Receive Date: 20200224
  Receipt Date: 20200228
  Transmission Date: 20200409
  Serious: No
  Sender: FDA-Public Use
  Company Number: NVSC2020US051500

PATIENT
  Sex: Male

DRUGS (2)
  1. ENTRESTO [Suspect]
     Active Substance: SACUBITRIL\VALSARTAN
     Dosage: 0.5 DF, BID (24MG SACUBITRIL /26MGVALSARTAN)
     Route: 048
  2. ENTRESTO [Suspect]
     Active Substance: SACUBITRIL\VALSARTAN
     Indication: PRODUCT USED FOR UNKNOWN INDICATION
     Dosage: 1 DF, BID (24MG SACUBITRIL /26MGVALSARTAN)
     Route: 048

REACTIONS (6)
  - Arthralgia [Unknown]
  - Feeling jittery [Unknown]
  - Nervousness [Unknown]
  - Wrong technique in product usage process [Unknown]
  - Stress [Unknown]
  - Renal function test abnormal [Unknown]
